FAERS Safety Report 20166921 (Version 1)
Quarter: 2021Q4

REPORT INFORMATION
  Report Type: Spontaneous
  Country: IT (occurrence: IT)
  Receive Date: 20211209
  Receipt Date: 20211209
  Transmission Date: 20220303
  Serious: Yes (Other)
  Sender: FDA-Public Use
  Company Number: IT-PFIZER INC-202101724051

PATIENT
  Age: 67 Year
  Sex: Female
  Weight: 42 kg

DRUGS (7)
  1. INFLIXIMAB [Suspect]
     Active Substance: INFLIXIMAB
     Indication: Colitis microscopic
     Dosage: 400 MG, CYCLIC
     Route: 042
     Dates: start: 20201002, end: 20211116
  2. BISOPROLOL FUMARATE [Concomitant]
     Active Substance: BISOPROLOL FUMARATE
     Dosage: UNK
  3. LUCEN [ESOMEPRAZOLE MAGNESIUM] [Concomitant]
     Dosage: UNK
  4. QUESTRAN [Concomitant]
     Active Substance: CHOLESTYRAMINE
     Dosage: UNK
  5. CHOLECALCIFEROL [Concomitant]
     Active Substance: CHOLECALCIFEROL
     Dosage: UNK
  6. CLODRONATE DISODIUM [Concomitant]
     Active Substance: CLODRONATE DISODIUM
     Dosage: UNK
  7. OROTRE [Concomitant]
     Dosage: UNK

REACTIONS (1)
  - Heteroplasia [Unknown]

NARRATIVE: CASE EVENT DATE: 20211116
